FAERS Safety Report 20349844 (Version 1)
Quarter: 2022Q1

REPORT INFORMATION
  Report Type: Spontaneous
  Country: US (occurrence: None)
  Receive Date: 20220119
  Receipt Date: 20220119
  Transmission Date: 20220423
  Serious: Yes (Hospitalization)
  Sender: FDA-Public Use
  Company Number: None

PATIENT
  Age: 69 Year
  Sex: Female
  Weight: 24.2 kg

DRUGS (7)
  1. MOLNUPIRAVIR [Suspect]
     Active Substance: MOLNUPIRAVIR
     Indication: COVID-19 pneumonia
     Dosage: FREQUENCY : TWICE A DAY;?
     Route: 048
     Dates: start: 20220113, end: 20220118
  2. BYSTOLIC [Concomitant]
  3. PULMICORT TURBUHALER [Concomitant]
     Active Substance: BUDESONIDE
  4. FORMOTEROL [Concomitant]
  5. PLAQUENIL [Concomitant]
  6. OLMESARTAN [Concomitant]
     Active Substance: OLMESARTAN
  7. TYLENOL [Concomitant]
     Active Substance: ACETAMINOPHEN

REACTIONS (3)
  - Hyponatraemia [None]
  - Pleural effusion [None]
  - Pneumonia [None]

NARRATIVE: CASE EVENT DATE: 20220119
